FAERS Safety Report 6546694-6 (Version None)
Quarter: 2010Q1

REPORT INFORMATION
  Report Type: 
  Country: None (occurrence: None)
  Receive Date: 20100122
  Receipt Date: 20080730
  Transmission Date: 20100710
  Serious: Yes (Hospitalization)
  Sender: FDA-Public Use
  Company Number: DE-ROCHE-578762

PATIENT
  Sex: Female
  Weight: 50 kg

DRUGS (7)
  1. BEVACIZUMAB [Suspect]
     Route: 042
     Dates: start: 20080114
  2. PACLITAXEL [Suspect]
     Dosage: FORM: INFUSION
     Route: 042
     Dates: start: 20080103
  3. CARBOPLATIN [Suspect]
     Route: 042
     Dates: start: 20080103
  4. TRAMOL [Suspect]
     Indication: DRUG USE FOR UNKNOWN INDICATION
     Route: 048
     Dates: start: 20080101
  5. TRAMOL [Suspect]
     Dosage: DOSE WAS REDUCED.
     Route: 048
  6. BISOPROLOL FUMARATE [Concomitant]
     Route: 048
     Dates: start: 20080111, end: 20080421
  7. BISOPROLOL FUMARATE [Concomitant]
     Route: 048
     Dates: start: 20080421

REACTIONS (2)
  - DEPRESSION [None]
  - GENERAL PHYSICAL HEALTH DETERIORATION [None]
